FAERS Safety Report 21073819 (Version 1)
Quarter: 2022Q3

REPORT INFORMATION
  Report Type: Spontaneous
  Country: US (occurrence: US)
  Receive Date: 20220713
  Receipt Date: 20220713
  Transmission Date: 20221026
  Serious: No
  Sender: FDA-Public Use
  Company Number: US-AMRING PHARMACEUTICALS INC.-2022US002272

PATIENT
  Sex: Female

DRUGS (3)
  1. MESALAMINE RECTAL [Suspect]
     Active Substance: MESALAMINE
     Indication: Colitis ulcerative
     Dosage: UNK
     Route: 065
  2. MESALAMINE RECTAL [Suspect]
     Active Substance: MESALAMINE
     Dosage: 1000 MG, DAILY
     Route: 054
     Dates: start: 202203
  3. ATIVAN [Concomitant]
     Active Substance: LORAZEPAM
     Indication: Product used for unknown indication
     Dosage: UNK, IN EVENING
     Route: 065

REACTIONS (4)
  - Haematochezia [Not Recovered/Not Resolved]
  - Scratch [Recovered/Resolved]
  - Administration site irritation [Recovered/Resolved]
  - Product physical issue [Unknown]
